FAERS Safety Report 9368665 (Version 1)
Quarter: 2013Q2

REPORT INFORMATION
  Report Type: Spontaneous
  Country: US (occurrence: US)
  Receive Date: 20130626
  Receipt Date: 20130626
  Transmission Date: 20140414
  Serious: No
  Sender: FDA-Public Use
  Company Number: US-ASTELLAS-2013US001072

PATIENT
  Sex: Male

DRUGS (1)
  1. VESICARE [Suspect]
     Indication: BENIGN PROSTATIC HYPERPLASIA
     Dosage: 5 MG, UNKNOWN/D
     Route: 048

REACTIONS (1)
  - Off label use [Unknown]
